FAERS Safety Report 25749657 (Version 2)
Quarter: 2025Q4

REPORT INFORMATION
  Report Type: Report from Study
  Country: GB (occurrence: None)
  Receive Date: 20250902
  Receipt Date: 20251103
  Transmission Date: 20260118
  Serious: No
  Sender: UCB
  Company Number: GB-UCBSA-2025053144

PATIENT

DRUGS (2)
  1. BIMEKIZUMAB [Suspect]
     Active Substance: BIMEKIZUMAB
     Indication: Psoriatic arthropathy
     Dosage: 160 MILLIGRAM, EV 4 WEEKS
  2. BIMEKIZUMAB [Suspect]
     Active Substance: BIMEKIZUMAB
     Dosage: 160 MILLIGRAM, EV 4 WEEKS

REACTIONS (8)
  - BASDAI score increased [Unknown]
  - Back pain [Unknown]
  - Movement disorder [Unknown]
  - Condition aggravated [Unknown]
  - Neck pain [Unknown]
  - Musculoskeletal stiffness [Unknown]
  - Fibromyalgia [Unknown]
  - Pain [Unknown]
